FAERS Safety Report 13213080 (Version 2)
Quarter: 2017Q2

REPORT INFORMATION
  Report Type: Spontaneous
  Country: SE (occurrence: SE)
  Receive Date: 20170210
  Receipt Date: 20170418
  Transmission Date: 20170830
  Serious: Yes (Other)
  Sender: FDA-Public Use
  Company Number: SE-TEVA-735647ISR

PATIENT
  Age: 32 Year
  Sex: Female

DRUGS (1)
  1. CITALOPRAM [Suspect]
     Active Substance: CITALOPRAM HYDROBROMIDE
     Indication: DEPRESSION
     Route: 065
     Dates: end: 20091031

REACTIONS (7)
  - Psychotic disorder [Unknown]
  - Brain injury [Unknown]
  - Restlessness [Unknown]
  - Obsessive thoughts [Unknown]
  - Dyskinesia [Unknown]
  - Burning sensation [Unknown]
  - Mania [Unknown]

NARRATIVE: CASE EVENT DATE: 200911
